FAERS Safety Report 24259935 (Version 1)
Quarter: 2024Q3

REPORT INFORMATION
  Report Type: Spontaneous
  Country: US (occurrence: None)
  Receive Date: 20240827
  Receipt Date: 20240827
  Transmission Date: 20241017
  Serious: Yes (Death)
  Sender: Public
  Company Number: None

PATIENT
  Age: 84 Year
  Sex: Male
  Weight: 116.1 kg

DRUGS (1)
  1. NUBEQA [Suspect]
     Active Substance: DAROLUTAMIDE
     Indication: Prostate cancer
     Dosage: 600 MG TWICE A DAY ORAL
     Route: 048
     Dates: start: 20240412, end: 20240522

REACTIONS (1)
  - Death [None]

NARRATIVE: CASE EVENT DATE: 20240604
